FAERS Safety Report 12861938 (Version 1)
Quarter: 2016Q4

REPORT INFORMATION
  Report Type: Spontaneous
  Country: DE (occurrence: DE)
  Receive Date: 20161019
  Receipt Date: 20161019
  Transmission Date: 20170207
  Serious: Yes (Other)
  Sender: FDA-Public Use
  Company Number: DE-PFIZER INC-2016479081

PATIENT
  Age: 75 Year
  Sex: Female
  Weight: 86 kg

DRUGS (5)
  1. RIVAROXABAN [Suspect]
     Active Substance: RIVAROXABAN
     Indication: THROMBOSIS PROPHYLAXIS
     Dosage: 10 MG, 1X/DAY
     Route: 048
     Dates: start: 20160909, end: 20160928
  2. FERRO-SANOL DUODENAL [Concomitant]
     Active Substance: FERROUS GLYCINE SULFATE
     Indication: ANAEMIA POSTOPERATIVE
     Dosage: UNK
     Route: 048
     Dates: start: 20160909, end: 20160928
  3. IBUPROFEN. [Suspect]
     Active Substance: IBUPROFEN
     Indication: PROCEDURAL PAIN
     Dosage: 600 MG, 3X/DAY
     Route: 048
     Dates: start: 20160909, end: 20160928
  4. OMEPRAZOLE. [Suspect]
     Active Substance: OMEPRAZOLE
     Indication: PROPHYLAXIS AGAINST GASTROINTESTINAL ULCER
     Dosage: 20 MG, 1X/DAY
     Route: 048
     Dates: start: 20160909, end: 20160928
  5. CANDESARTAN [Concomitant]
     Active Substance: CANDESARTAN
     Indication: HYPERTENSION
     Dosage: UNK
     Route: 048
     Dates: end: 20160928

REACTIONS (2)
  - Pyrexia [Recovering/Resolving]
  - Urticaria [Recovering/Resolving]

NARRATIVE: CASE EVENT DATE: 20160928
